FAERS Safety Report 4661979-6 (Version None)
Quarter: 2005Q2

REPORT INFORMATION
  Report Type: 
  Country: None (occurrence: None)
  Receive Date: 20050512
  Receipt Date: 20050512
  Transmission Date: 20051028
  Serious: Yes (Hospitalization)
  Sender: FDA-Public Use
  Company Number: None

PATIENT
  Age: 58 Year
  Sex: Male

DRUGS (26)
  1. PERCOCET [Suspect]
     Indication: PAIN
     Dosage: 1 TABLET PO   TID
     Route: 048
     Dates: start: 20041111, end: 20050304
  2. MORPHINE [Suspect]
     Indication: PAIN
     Dosage: 30MG SA PO  BID
     Route: 048
     Dates: start: 20050303, end: 20050404
  3. ALBUTEROL [Concomitant]
  4. ALLOPURINOL [Concomitant]
  5. BACITRACIN/NEOMYCIN/POLMX [Concomitant]
  6. DIGOXIN [Concomitant]
  7. EMULSION TOP CRM [Concomitant]
  8. ENALAPRIL MALEATE [Concomitant]
  9. FELODIPINE [Concomitant]
  10. FLUNISOLIDE [Concomitant]
  11. FUROSEMIDE [Concomitant]
  12. GEMFIBROZIL [Concomitant]
  13. HYDROCORTISONE 1% TOP CREAM [Concomitant]
  14. HUMULIN N [Concomitant]
  15. HUMULIN R [Concomitant]
  16. ISOSORBIDE DINITRATE [Concomitant]
  17. METFORMIN HCL [Concomitant]
  18. METOPROLOL TARTRATE [Concomitant]
  19. OXYCODONE + ACETAMIN [Concomitant]
  20. RANITIDINE HCL [Concomitant]
  21. ROSIGLITAZONE [Concomitant]
  22. SIMVASTATIN [Concomitant]
  23. SPIRONOLACTONE [Concomitant]
  24. TERBINAFINE HYDROCHLORIDE CREAM 1% [Concomitant]
  25. TRIAMCINOLONE ACETONIDE [Concomitant]
  26. WARFARIN SODIUM [Concomitant]

REACTIONS (3)
  - ACCIDENTAL OVERDOSE [None]
  - LETHARGY [None]
  - MEDICATION ERROR [None]
